FAERS Safety Report 15037122 (Version 1)
Quarter: 2018Q2

REPORT INFORMATION
  Report Type: Spontaneous
  Country: US (occurrence: US)
  Receive Date: 20180530
  Receipt Date: 20180530
  Transmission Date: 20180711
  Serious: No
  Sender: FDA-Public Use
  Company Number: None

PATIENT
  Sex: Female
  Weight: 77.11 kg

DRUGS (2)
  1. FORTEO [Suspect]
     Active Substance: TERIPARATIDE
     Indication: SENILE OSTEOPOROSIS
     Route: 058
     Dates: start: 201610
  2. FORTEO [Suspect]
     Active Substance: TERIPARATIDE
     Indication: TIBIA FRACTURE
     Route: 058
     Dates: start: 201610

REACTIONS (2)
  - Constipation [None]
  - Drug dose omission [None]
